FAERS Safety Report 9876662 (Version 2)
Quarter: 2014Q1

REPORT INFORMATION
  Report Type: Other
  Country: US (occurrence: US)
  Receive Date: 20140206
  Receipt Date: 20140206
  Transmission Date: 20141002
  Serious: No
  Sender: FDA-Public Use
  Company Number: US-ACORDA-ACO_36707_2013

PATIENT
  Sex: Female
  Weight: 49.89 kg

DRUGS (3)
  1. AMPYRA [Suspect]
     Indication: PRODUCT USED FOR UNKNOWN INDICATION
     Dosage: 10 MG, BID
     Route: 048
     Dates: start: 201302, end: 201305
  2. TIZANIDINE [Concomitant]
     Indication: PAIN IN EXTREMITY
     Dosage: 2 MG, BID PRN
     Route: 048
     Dates: start: 20130617
  3. TIZANIDINE [Concomitant]
     Indication: MUSCLE SPASMS

REACTIONS (1)
  - Drug ineffective [Recovered/Resolved]
